FAERS Safety Report 12844021 (Version 1)
Quarter: 2016Q4

REPORT INFORMATION
  Report Type: Spontaneous
  Country: CN (occurrence: CN)
  Receive Date: 20161013
  Receipt Date: 20161013
  Transmission Date: 20170207
  Serious: Yes (Other)
  Sender: FDA-Public Use
  Company Number: CN-FRESENIUS KABI-FK201607686

PATIENT
  Sex: Female

DRUGS (1)
  1. INTRALIPID [Suspect]
     Active Substance: EGG PHOSPHOLIPIDS\GLYCERIN\SOYBEAN OIL
     Indication: HYPEREMESIS GRAVIDARUM
     Route: 041
     Dates: start: 20160422, end: 20160422

REACTIONS (5)
  - Dizziness [Recovered/Resolved]
  - Exposure during pregnancy [Unknown]
  - Chills [Recovered/Resolved]
  - Headache [Recovered/Resolved]
  - Pyrexia [Recovered/Resolved]

NARRATIVE: CASE EVENT DATE: 20160422
